FAERS Safety Report 18472058 (Version 2)
Quarter: 2021Q4

REPORT INFORMATION
  Report Type: Report from Study
  Country: US (occurrence: US)
  Receive Date: 20201105
  Receipt Date: 20211119
  Transmission Date: 20220303
  Serious: Yes (Other)
  Sender: FDA-Public Use
  Company Number: US-SHIRE-US201721659

PATIENT
  Sex: Female

DRUGS (1)
  1. HUMAN IMMUNOGLOBULIN G [Suspect]
     Active Substance: HUMAN IMMUNOGLOBULIN G
     Indication: Immunodeficiency common variable
     Dosage: UNK, UNK
     Route: 058

REACTIONS (4)
  - Nasopharyngitis [Unknown]
  - Autoimmune disorder [Unknown]
  - Diabetes mellitus [Unknown]
  - Cardiac disorder [Unknown]
